FAERS Safety Report 11101850 (Version 1)
Quarter: 2015Q2

REPORT INFORMATION
  Report Type: Spontaneous
  Country: US (occurrence: US)
  Receive Date: 20150509
  Receipt Date: 20150509
  Transmission Date: 20150821
  Serious: Yes (Other)
  Sender: FDA-Public Use
  Company Number: US-AMGEN-USASP2015038873

PATIENT
  Age: 77 Year
  Sex: Female
  Weight: 63.39 kg

DRUGS (2)
  1. NPLATE [Suspect]
     Active Substance: ROMIPLOSTIM
     Indication: IMMUNE THROMBOCYTOPENIC PURPURA
     Dosage: 140 UNKNOWN, QWK
     Route: 065
     Dates: start: 2014
  2. RITUXIMAB [Concomitant]
     Active Substance: RITUXIMAB
     Dosage: UNK
     Dates: start: 201406

REACTIONS (2)
  - Platelet count decreased [Unknown]
  - Weight fluctuation [Unknown]
